FAERS Safety Report 8330273-4 (Version None)
Quarter: 2012Q2

REPORT INFORMATION
  Report Type: 
  Country: None (occurrence: None)
  Receive Date: 20120502
  Receipt Date: 20120426
  Transmission Date: 20120825
  Serious: Yes (Hospitalization)
  Sender: FDA-Public Use
  Company Number: US-ABBOTT-12P-163-0930129-00

PATIENT
  Sex: Female
  Weight: 122.58 kg

DRUGS (1)
  1. HUMIRA [Suspect]
     Indication: CROHN'S DISEASE
     Dates: start: 20100501, end: 20111201

REACTIONS (3)
  - SKIN INFECTION [None]
  - ABSCESS RUPTURE [None]
  - ERYTHEMA [None]
